FAERS Safety Report 6454634-3 (Version None)
Quarter: 2009Q4

REPORT INFORMATION
  Report Type: 
  Country: None (occurrence: None)
  Receive Date: 20091124
  Receipt Date: 20091113
  Transmission Date: 20100525
  Serious: Yes (Death, Hospitalization, Disabling)
  Sender: FDA-Public Use
  Company Number: JP-WYE-H12205709

PATIENT
  Sex: Female

DRUGS (19)
  1. ANCARON [Suspect]
     Indication: VENTRICULAR TACHYARRHYTHMIA
     Route: 050
     Dates: start: 20090907, end: 20090914
  2. ANCARON [Suspect]
     Indication: VENTRICULAR FIBRILLATION
  3. PLAVIX [Suspect]
     Indication: DRUG USE FOR UNKNOWN INDICATION
     Route: 048
     Dates: end: 20090914
  4. ASPIRIN [Suspect]
     Indication: DRUG USE FOR UNKNOWN INDICATION
     Route: 065
     Dates: end: 20090914
  5. LIPITOR [Suspect]
     Indication: DRUG USE FOR UNKNOWN INDICATION
     Route: 065
     Dates: end: 20090914
  6. TAKEPRON [Suspect]
     Indication: DRUG USE FOR UNKNOWN INDICATION
     Route: 065
     Dates: end: 20090914
  7. MAGNESIUM OXIDE [Suspect]
     Indication: DRUG USE FOR UNKNOWN INDICATION
     Route: 065
     Dates: end: 20090914
  8. NORADRENALINE [Concomitant]
     Indication: DRUG USE FOR UNKNOWN INDICATION
     Dosage: DOSE UNKNOWN
     Route: 065
     Dates: start: 20090905, end: 20090916
  9. DOBUTAMINE HYDROCHLORIDE [Concomitant]
     Indication: DRUG USE FOR UNKNOWN INDICATION
     Dosage: DOSE UNKNOWN
     Route: 065
     Dates: start: 20090905, end: 20090913
  10. INOVAN [Concomitant]
     Indication: DRUG USE FOR UNKNOWN INDICATION
     Dosage: DOSE UNKNOWN
     Route: 065
     Dates: start: 20090905, end: 20090923
  11. PRECEDEX [Concomitant]
     Indication: DRUG USE FOR UNKNOWN INDICATION
     Dosage: DOSE UNKNOWN
     Route: 065
     Dates: start: 20090905, end: 20090915
  12. ELASPOL [Concomitant]
     Indication: DRUG USE FOR UNKNOWN INDICATION
     Dosage: DOSE UNKNOWN
     Route: 065
     Dates: start: 20090905, end: 20090918
  13. DIPRIVAN [Concomitant]
     Indication: DRUG USE FOR UNKNOWN INDICATION
     Dosage: DOSE UNKNOWN
     Route: 065
     Dates: start: 20090907, end: 20090913
  14. HANP [Concomitant]
     Indication: DRUG USE FOR UNKNOWN INDICATION
     Dosage: DOSE UNKNOWN
     Route: 065
     Dates: start: 20090911, end: 20090922
  15. NITROGLYCERIN [Concomitant]
     Indication: DRUG USE FOR UNKNOWN INDICATION
     Dosage: DOSE UNKNOWN
     Route: 065
     Dates: start: 20090914, end: 20090922
  16. HEPARIN [Concomitant]
     Indication: DRUG USE FOR UNKNOWN INDICATION
     Dosage: DOSE UNKNOWN
     Route: 065
     Dates: start: 20090905, end: 20090920
  17. AMIODARONE HYDROCHLORIDE [Suspect]
     Indication: VENTRICULAR TACHYARRHYTHMIA
     Dosage: 1.25 MG/DL ONCE OVER A FEW HOURS
     Route: 042
     Dates: start: 20090905, end: 20090905
  18. AMIODARONE HYDROCHLORIDE [Suspect]
     Indication: VENTRICULAR FIBRILLATION
     Dosage: 1.5 MG/DL ONCE OVER A FEW HOURS
     Route: 042
     Dates: start: 20090905, end: 20090906
  19. AMIODARONE HYDROCHLORIDE [Suspect]
     Dosage: 1.5 MG/DL ONCE OVER A FEW HOURS
     Route: 042
     Dates: start: 20090906, end: 20090907

REACTIONS (2)
  - HEPATIC FAILURE [None]
  - MULTI-ORGAN FAILURE [None]
